FAERS Safety Report 4641321-7 (Version None)
Quarter: 2005Q2

REPORT INFORMATION
  Report Type: 
  Country: None (occurrence: None)
  Receive Date: 20050421
  Receipt Date: 20041217
  Transmission Date: 20051028
  Serious: Yes (Hospitalization)
  Sender: FDA-Public Use
  Company Number: US-MERCK-0412USA02202

PATIENT
  Age: 42 Year
  Sex: Male
  Weight: 99 kg

DRUGS (6)
  1. VIOXX [Suspect]
     Indication: NEUROPATHIC PAIN
     Route: 048
     Dates: start: 20011112, end: 20041203
  2. MOBIC [Concomitant]
     Route: 065
  3. NEURONTIN [Concomitant]
     Indication: NEUROPATHIC PAIN
     Route: 048
  4. ALLEGRA [Concomitant]
     Indication: RHINITIS ALLERGIC
     Route: 048
  5. CARDIZEM LA [Concomitant]
     Indication: HYPERTENSION
     Route: 048
  6. MAXZIDE [Concomitant]
     Indication: HYPERTENSION
     Route: 048

REACTIONS (5)
  - ANAEMIA [None]
  - CHEST PAIN [None]
  - COAGULOPATHY [None]
  - DEEP VEIN THROMBOSIS [None]
  - PULMONARY INFARCTION [None]
